FAERS Safety Report 6549366-7 (Version None)
Quarter: 2010Q1

REPORT INFORMATION
  Report Type: 
  Country: None (occurrence: None)
  Receive Date: 20100125
  Receipt Date: 20100114
  Transmission Date: 20100710
  Serious: Yes (Other)
  Sender: FDA-Public Use
  Company Number: PHHY2009CH30833

PATIENT
  Age: 81 Year
  Sex: Male

DRUGS (4)
  1. LEPONEX [Suspect]
     Indication: BIPOLAR DISORDER
     Dosage: 25 MG/DAY
     Dates: start: 20040101
  2. LEPONEX [Suspect]
     Dosage: 12.5 MG/DAY
     Dates: end: 20090504
  3. LEPONEX [Suspect]
     Dosage: 25 MG/DAY
     Dates: start: 20090515
  4. DEPAKENE [Concomitant]
     Indication: BIPOLAR DISORDER
     Dosage: 1500 MG/DAY
     Dates: start: 20040101

REACTIONS (8)
  - ANHEDONIA [None]
  - APATHY [None]
  - ASOCIAL BEHAVIOUR [None]
  - COGNITIVE DISORDER [None]
  - CRYING [None]
  - DEPRESSION [None]
  - DRUG WITHDRAWAL SYNDROME [None]
  - GAIT DISTURBANCE [None]
